FAERS Safety Report 10553937 (Version 1)
Quarter: 2014Q4

REPORT INFORMATION
  Report Type: Spontaneous
  Country: FR (occurrence: FR)
  Receive Date: 20141030
  Receipt Date: 20141030
  Transmission Date: 20150529
  Serious: Yes (Hospitalization)
  Sender: FDA-Public Use
  Company Number: FR-UCBSA-2014015882

PATIENT
  Age: 35 Year
  Sex: Female

DRUGS (7)
  1. IRBESARTAN. [Suspect]
     Active Substance: IRBESARTAN
     Dosage: 20 DF, ONE TIME DOSE
     Route: 048
     Dates: start: 20140926, end: 20140926
  2. RILMENIDINE [Suspect]
     Active Substance: RILMENIDINE
     Dosage: 15 DF, ONE TIME DOSE
     Route: 048
     Dates: start: 20140926, end: 20140926
  3. HEMIGOXINE [Suspect]
     Active Substance: DIGOXIN
     Dosage: 30 DF, ONE TIME DOSE
     Route: 048
     Dates: start: 20140926, end: 20140926
  4. BISOPROLOL [Suspect]
     Active Substance: BISOPROLOL
     Dosage: 20 DF, ONE TIME DOSE
     Route: 048
     Dates: start: 20140926, end: 20140926
  5. KEPPRA [Suspect]
     Active Substance: LEVETIRACETAM
     Dosage: 10 DF, ONE TIME DOSE
     Route: 048
     Dates: start: 20140926, end: 20140926
  6. EBIXA [Suspect]
     Active Substance: MEMANTINE HYDROCHLORIDE
     Dosage: 14 DF, ONE TIME DOSE
     Route: 048
     Dates: start: 20140926, end: 20140926
  7. GLICLAZIDE [Suspect]
     Active Substance: GLICLAZIDE
     Dosage: 15 DF, ONE TIME DOSE
     Route: 048
     Dates: start: 20140926, end: 20140926

REACTIONS (4)
  - Sinus bradycardia [Recovered/Resolved]
  - Toxicity to various agents [Recovered/Resolved]
  - Hypotension [Recovered/Resolved]
  - Somnolence [Recovered/Resolved]

NARRATIVE: CASE EVENT DATE: 20140926
